FAERS Safety Report 7541866-6 (Version None)
Quarter: 2011Q2

REPORT INFORMATION
  Report Type: 
  Country: None (occurrence: None)
  Receive Date: 20110606
  Receipt Date: 20110527
  Transmission Date: 20111010
  Serious: Yes (Other)
  Sender: FDA-Public Use
  Company Number: B0723709A

PATIENT
  Age: 5 Year
  Sex: Female

DRUGS (3)
  1. FLUTICASONE PROPIONATE [Suspect]
     Indication: ASTHMA
     Dosage: 500 MCG, INHALED
     Route: 055
  2. DEXTROSE [Concomitant]
  3. CICLESONIDE [Concomitant]

REACTIONS (5)
  - URINE KETONE BODY PRESENT [None]
  - CONVULSION [None]
  - ADRENAL SUPPRESSION [None]
  - HYPOGLYCAEMIA [None]
  - INCORRECT DOSE ADMINISTERED [None]
